FAERS Safety Report 23335907 (Version 3)
Quarter: 2024Q1

REPORT INFORMATION
  Report Type: Spontaneous
  Country: JP (occurrence: JP)
  Receive Date: 20231225
  Receipt Date: 20240128
  Transmission Date: 20240410
  Serious: Yes (Other)
  Sender: FDA-Public Use
  Company Number: JP-KYOWAKIRIN-2023KK019657

PATIENT
  Age: 75 Year
  Sex: Male

DRUGS (3)
  1. DARBEPOETIN ALFA [Suspect]
     Active Substance: DARBEPOETIN ALFA
     Indication: Nephrogenic anaemia
     Dosage: 20 MICROGRAM
     Route: 040
  2. DARBEPOETIN ALFA [Suspect]
     Active Substance: DARBEPOETIN ALFA
     Dosage: 80 MICROGRAM
     Route: 040
     Dates: end: 20231210
  3. DARBEPOETIN ALFA [Suspect]
     Active Substance: DARBEPOETIN ALFA
     Dosage: 120 MICROGRAM
     Route: 040
     Dates: start: 20231211

REACTIONS (2)
  - Wrong technique in product usage process [Unknown]
  - Aplasia pure red cell [Unknown]
